FAERS Safety Report 4541756-7 (Version None)
Quarter: 2004Q4

REPORT INFORMATION
  Report Type: 
  Country: None (occurrence: None)
  Receive Date: 20041230
  Receipt Date: 20040113
  Transmission Date: 20050328
  Serious: Yes (Death)
  Sender: FDA-Public Use
  Company Number: 200410055JP

PATIENT
  Age: 57 Year
  Sex: Male
  Weight: 164.5 kg

DRUGS (7)
  1. ARAVA [Suspect]
     Indication: RHEUMATOID ARTHRITIS
     Route: 048
     Dates: start: 20030909, end: 20040112
  2. PREDNISOLONE [Concomitant]
     Indication: RHEUMATOID ARTHRITIS
     Route: 048
     Dates: end: 20040115
  3. ULGUT [Concomitant]
     Route: 048
     Dates: end: 20040118
  4. INTEBAN [Concomitant]
     Indication: RHEUMATOID ARTHRITIS
     Route: 048
     Dates: start: 20030504, end: 20040118
  5. SELBEX [Concomitant]
     Route: 048
     Dates: end: 20040118
  6. MORPHINE [Concomitant]
     Indication: RHEUMATOID ARTHRITIS
     Route: 062
     Dates: end: 20040112
  7. METHOTREXATE [Concomitant]
     Dosage: DOSE: 4MG/WEEK
     Route: 048
     Dates: start: 20010205, end: 20010501

REACTIONS (11)
  - ALANINE AMINOTRANSFERASE INCREASED [None]
  - ASPARTATE AMINOTRANSFERASE INCREASED [None]
  - BLOOD LACTATE DEHYDROGENASE INCREASED [None]
  - BLOOD UREA INCREASED [None]
  - DIARRHOEA [None]
  - INFECTION [None]
  - INTERSTITIAL LUNG DISEASE [None]
  - ORGAN FAILURE [None]
  - PLATELET COUNT DECREASED [None]
  - REFUSAL OF TREATMENT BY PATIENT [None]
  - THERAPY NON-RESPONDER [None]
